FAERS Safety Report 15005923 (Version 2)
Quarter: 2018Q3

REPORT INFORMATION
  Report Type: Report from Study
  Country: BR (occurrence: BR)
  Receive Date: 20180613
  Receipt Date: 20180710
  Transmission Date: 20181010
  Serious: Yes (Other)
  Sender: FDA-Public Use
  Company Number: BR-JNJFOC-20180611244

PATIENT
  Age: 50 Year
  Sex: Female

DRUGS (2)
  1. STELARA [Suspect]
     Active Substance: USTEKINUMAB
     Indication: PSORIATIC ARTHROPATHY
     Route: 058
     Dates: start: 20171207
  2. GLIFAGE [Concomitant]
     Active Substance: METFORMIN HYDROCHLORIDE
     Route: 065

REACTIONS (2)
  - Pneumonia [Recovering/Resolving]
  - Contraindication to vaccination [Unknown]

NARRATIVE: CASE EVENT DATE: 201805
